FAERS Safety Report 7366540-0 (Version None)
Quarter: 2011Q1

REPORT INFORMATION
  Report Type: 
  Country: None (occurrence: None)
  Receive Date: 20110309
  Receipt Date: 20110221
  Transmission Date: 20110831
  Serious: Yes (Death, Hospitalization)
  Sender: FDA-Public Use
  Company Number: 2011MA001594

PATIENT
  Age: 43 Year
  Sex: Male
  Weight: 63 kg

DRUGS (1)
  1. NIFEDIPINE [Suspect]
     Indication: HYPERTENSION
     Dosage: 30 MG;BID;PO
     Route: 048
     Dates: start: 20071101, end: 20071101

REACTIONS (10)
  - HEPATIC CIRRHOSIS [None]
  - MULTI-ORGAN FAILURE [None]
  - ABDOMINAL PAIN [None]
  - SOMNOLENCE [None]
  - BODY TEMPERATURE DECREASED [None]
  - HEPATOMEGALY [None]
  - CONFUSIONAL STATE [None]
  - ANION GAP INCREASED [None]
  - LACTIC ACIDOSIS [None]
  - BLOOD CREATINE INCREASED [None]
